FAERS Safety Report 20236312 (Version 1)
Quarter: 2021Q4

REPORT INFORMATION
  Report Type: Spontaneous
  Country: US (occurrence: US)
  Receive Date: 20211228
  Receipt Date: 20211228
  Transmission Date: 20220303
  Serious: No
  Sender: FDA-Public Use
  Company Number: US-SA-SAC20211225000727

PATIENT
  Sex: Male

DRUGS (20)
  1. DUPIXENT [Suspect]
     Active Substance: DUPILUMAB
     Indication: Eosinophilic oesophagitis
     Dosage: 300 MG, QOW
     Route: 058
     Dates: start: 20210420
  2. ALBUTEROL SULFATE [Concomitant]
     Active Substance: ALBUTEROL SULFATE
  3. ALIGN [Concomitant]
     Active Substance: BIFIDOBACTERIUM LONGUM SUBSP. INFANTIS
  4. ALLEGRA ALLERGY [Concomitant]
     Active Substance: FEXOFENADINE HYDROCHLORIDE
  5. DRISDOL [Concomitant]
     Active Substance: ERGOCALCIFEROL
  6. ENTOCORT EC [Concomitant]
     Active Substance: BUDESONIDE
  7. ENTYVIO [Concomitant]
     Active Substance: VEDOLIZUMAB
  8. FLOVENT HFA [Concomitant]
     Active Substance: FLUTICASONE PROPIONATE
  9. HUMIRA [Concomitant]
     Active Substance: ADALIMUMAB
  10. IBUPROFEN [Concomitant]
     Active Substance: IBUPROFEN
  11. MONTELUKAST SODIUM [Concomitant]
     Active Substance: MONTELUKAST SODIUM
  12. NASONEX [Concomitant]
     Active Substance: MOMETASONE FUROATE
  13. ACETAMINOPHEN [Concomitant]
     Active Substance: ACETAMINOPHEN
  14. ONDANSETRON [Concomitant]
     Active Substance: ONDANSETRON
  15. PREVACID [Concomitant]
     Active Substance: LANSOPRAZOLE
  16. BECLOMETHASONE DIPROPIONATE [Concomitant]
     Active Substance: BECLOMETHASONE DIPROPIONATE
  17. FERROUS SULFATE [Concomitant]
     Active Substance: FERROUS SULFATE
  18. LEVOCETIRIZINE [Concomitant]
     Active Substance: LEVOCETIRIZINE
  19. AUVI-Q [Concomitant]
     Active Substance: EPINEPHRINE
  20. DIETARY SUPPLEMENT [Concomitant]
     Active Substance: DIETARY SUPPLEMENT

REACTIONS (2)
  - Dry eye [Unknown]
  - Product use in unapproved indication [Unknown]
